FAERS Safety Report 9319302 (Version 1)
Quarter: 2013Q2

REPORT INFORMATION
  Report Type: Spontaneous
  Country: US (occurrence: None)
  Receive Date: 20130529
  Receipt Date: 20130529
  Transmission Date: 20140414
  Serious: Yes (Other)
  Sender: FDA-Public Use
  Company Number: None

PATIENT
  Age: 17 Year
  Sex: Female
  Weight: 36.7 kg

DRUGS (2)
  1. SEROQUEL [Suspect]
     Indication: EPILEPSY
     Dosage: 3 QHS PO
     Route: 048
     Dates: start: 200907
  2. SEROQUEL [Suspect]
     Indication: CYTOGENETIC ABNORMALITY
     Dosage: 3 QHS PO
     Route: 048
     Dates: start: 200907

REACTIONS (1)
  - Drug hypersensitivity [None]
